FAERS Safety Report 11096444 (Version 2)
Quarter: 2024Q2

REPORT INFORMATION
  Report Type: Report from Study
  Country: CA (occurrence: CA)
  Receive Date: 20150507
  Receipt Date: 20240516
  Transmission Date: 20240715
  Serious: Yes (Other)
  Sender: FDA-Public Use
  Company Number: CA-JNJFOC-20150500542

PATIENT
  Age: 57 Year
  Sex: Male
  Weight: 82 kg

DRUGS (1)
  1. REMICADE [Suspect]
     Active Substance: INFLIXIMAB
     Indication: Ankylosing spondylitis
     Route: 041

REACTIONS (1)
  - Intestinal haemorrhage [Recovered/Resolved]

NARRATIVE: CASE EVENT DATE: 20150331
